FAERS Safety Report 21231273 (Version 1)
Quarter: 2022Q3

REPORT INFORMATION
  Report Type: Spontaneous
  Country: US (occurrence: US)
  Receive Date: 20220819
  Receipt Date: 20220819
  Transmission Date: 20221027
  Serious: Yes (Other)
  Sender: FDA-Public Use
  Company Number: US-SA-SAC20220817000256

PATIENT
  Age: 51 Year

DRUGS (1)
  1. ZANTAC [Suspect]
     Active Substance: RANITIDINE HYDROCHLORIDE
     Dosage: UNK;FREQUENCY:OTHER
     Dates: start: 200607, end: 201701

REACTIONS (2)
  - Colorectal cancer [Unknown]
  - Anal cancer [Unknown]

NARRATIVE: CASE EVENT DATE: 20120601
